FAERS Safety Report 5041310-7 (Version None)
Quarter: 2006Q2

REPORT INFORMATION
  Report Type: 
  Country: None (occurrence: None)
  Receive Date: 20060626
  Receipt Date: 20060609
  Transmission Date: 20061013
  Serious: Yes (Other)
  Sender: FDA-Public Use
  Company Number: 2006PV014807

PATIENT
  Age: 51 Year
  Sex: Female
  Weight: 131.5431 kg

DRUGS (11)
  1. BYETTA [Suspect]
     Indication: DIABETES MELLITUS NON-INSULIN-DEPENDENT
     Dosage: SEE IMAGE
     Route: 058
     Dates: start: 20051005, end: 20051130
  2. BYETTA [Suspect]
     Indication: DIABETES MELLITUS NON-INSULIN-DEPENDENT
     Dosage: SEE IMAGE
     Route: 058
     Dates: start: 20051130, end: 20060410
  3. BYETTA [Suspect]
     Indication: DIABETES MELLITUS NON-INSULIN-DEPENDENT
     Dosage: SEE IMAGE
     Route: 058
     Dates: start: 20060420, end: 20060425
  4. BYETTA [Suspect]
     Indication: DIABETES MELLITUS NON-INSULIN-DEPENDENT
     Dosage: SEE IMAGE
     Route: 058
     Dates: start: 20060425, end: 20060427
  5. GLUCOVANCE [Concomitant]
  6. ZESTORETIC [Concomitant]
  7. LIPITOR [Concomitant]
  8. ACTOS [Concomitant]
  9. LUNESTA [Concomitant]
  10. CALCIUM GLUCONATE [Concomitant]
  11. PRENATAL VITAMINS [Concomitant]

REACTIONS (17)
  - BLOOD GLUCOSE INCREASED [None]
  - CARDIAC MURMUR [None]
  - CEREBRAL ISCHAEMIA [None]
  - COLD SWEAT [None]
  - DIABETIC RETINOPATHY [None]
  - DIARRHOEA [None]
  - DIPLOPIA [None]
  - EYE PAIN [None]
  - HEADACHE [None]
  - HYPERHIDROSIS [None]
  - IIIRD NERVE PARALYSIS [None]
  - ISCHAEMIC NEUROPATHY [None]
  - NAUSEA [None]
  - RETINAL ANEURYSM [None]
  - VISION BLURRED [None]
  - VOMITING [None]
  - WEIGHT DECREASED [None]
